FAERS Safety Report 9547708 (Version 1)
Quarter: 2013Q3

REPORT INFORMATION
  Report Type: Spontaneous
  Country: DE (occurrence: None)
  Receive Date: 20130920
  Receipt Date: 20130920
  Transmission Date: 20140515
  Serious: Yes (Hospitalization)
  Sender: FDA-Public Use
  Company Number: SYM-2013-10747

PATIENT
  Age: 82 Year
  Sex: Male

DRUGS (3)
  1. TASMAR [Suspect]
     Indication: PARKINSONISM
     Route: 048
     Dates: start: 20130620, end: 20130623
  2. DELIX (RAMIPRIL) (2.5) MILLIGRAM (RAMIPRIL) [Concomitant]
  3. PANTOZOL (PANTOPRAZOLE SODIUM SESQUIHYDRATE) (20 MILLIGRAM) (PANTOPRAZOLE SODIUM SESQUIHYDRATE) [Concomitant]

REACTIONS (2)
  - Hypotension [None]
  - Sinus bradycardia [None]
